FAERS Safety Report 8888291 (Version 1)
Quarter: 2012Q4

REPORT INFORMATION
  Report Type: 
  Country: CA (occurrence: CA)
  Receive Date: 20121106
  Receipt Date: 20121106
  Transmission Date: 20130627
  Serious: Yes (Other)
  Sender: FDA-Public Use
  Company Number: CA-PFIZER INC-2012265528

PATIENT
  Sex: Male

DRUGS (20)
  1. CELEBREX [Suspect]
     Dosage: 200 mg, 2x/day
  2. RIVA-METFORMIN [Concomitant]
     Dosage: 500 mg, 1x/day at dinner
  3. TIAZAC [Concomitant]
     Dosage: 120 mg, 1x/day at breakfast
  4. LIPITOR [Concomitant]
     Dosage: 20 mg, 1x/day before bed
  5. MYLAN-NITRO SUBLINGUAL SPRAY [Concomitant]
     Dosage: 0.4 mg, UNK
     Route: 060
  6. VIOXX [Concomitant]
     Dosage: 25 mg, 2x/day while eating
  7. RIVA GLYBURIDE [Concomitant]
     Dosage: 5 mg, 2x/day before meals
  8. ASAPHEN [Concomitant]
     Dosage: 81 mg, 1x/day at breakfast
  9. MONOCOR [Concomitant]
     Dosage: 5 mg, 1x/day at breakfast
  10. RHOVANE [Concomitant]
     Dosage: 7.5 mg, UNK
  11. PMS-GLYBURIDE [Concomitant]
     Dosage: 5 mg, UNK
  12. ENTROPHEN [Concomitant]
     Dosage: 81 mg, UNK
  13. PMS-METFORMIN [Concomitant]
     Dosage: 850 mg, UNK
  14. PLAVIX [Concomitant]
     Dosage: 75 mg, UNK
  15. GLUCONORM [Concomitant]
     Dosage: 2 mg, UNK
  16. NITRO-DUR [Concomitant]
     Dosage: 0.4 mg, UNK
  17. OXAZEPAM [Concomitant]
     Dosage: 15 mg, UNK
  18. ARTHROTEC [Concomitant]
     Dosage: 75 mg, UNK
  19. MYLAN-METFORMIN [Concomitant]
     Dosage: 850 mg, UNK
  20. NICODERM [Concomitant]
     Dosage: 21 mg/24hour

REACTIONS (2)
  - Myocardial infarction [Recovering/Resolving]
  - Renal failure [Not Recovered/Not Resolved]
